FAERS Safety Report 6379328-4 (Version None)
Quarter: 2009Q3

REPORT INFORMATION
  Report Type: 
  Country: None (occurrence: None)
  Receive Date: 20090928
  Receipt Date: 20090916
  Transmission Date: 20100115
  Serious: Yes (Hospitalization, Other)
  Sender: FDA-Public Use
  Company Number: FR-ELI_LILLY_AND_COMPANY-FR200904004730

PATIENT
  Age: 73 Year
  Sex: Male

DRUGS (4)
  1. ALIMTA [Suspect]
     Indication: LUNG NEOPLASM MALIGNANT
     Dosage: 500 MG/M2, EVERY THREE WEEKS
     Route: 042
     Dates: start: 20080909, end: 20080930
  2. VITAMIN B-12 [Concomitant]
     Indication: VITAMIN SUPPLEMENTATION
     Dates: start: 20080101
  3. FOLIC ACID [Concomitant]
     Indication: VITAMIN SUPPLEMENTATION
     Dates: start: 20080901
  4. CORTICOSTEROID NOS [Concomitant]

REACTIONS (4)
  - FEBRILE NEUTROPENIA [None]
  - MUCOSAL HAEMORRHAGE [None]
  - RENAL FAILURE [None]
  - THROMBOCYTOPENIA [None]
